FAERS Safety Report 10762612 (Version 1)
Quarter: 2015Q1

REPORT INFORMATION
  Report Type: Report from Study
  Country: JP (occurrence: JP)
  Receive Date: 20150204
  Receipt Date: 20150204
  Transmission Date: 20150721
  Serious: Yes (Death, Hospitalization)
  Sender: FDA-Public Use
  Company Number: JP-BRISTOL-MYERS SQUIBB COMPANY-19551589

PATIENT
  Age: 76 Year
  Sex: Male

DRUGS (27)
  1. ETODOLAC. [Concomitant]
     Active Substance: ETODOLAC
     Indication: PRODUCT USED FOR UNKNOWN INDICATION
     Dosage: UNK
     Route: 065
     Dates: start: 20130430
  2. MIYA-BM [Concomitant]
     Active Substance: CLOSTRIDIUM BUTYRICUM SPORES STRAIN M-55
     Indication: PRODUCT USED FOR UNKNOWN INDICATION
     Dosage: UNK
     Route: 065
     Dates: start: 20131025
  3. FENTANYL CITRATE. [Concomitant]
     Active Substance: FENTANYL CITRATE
     Indication: PRODUCT USED FOR UNKNOWN INDICATION
     Dosage: UNK
     Route: 065
     Dates: start: 20131128
  4. PLACEBO [Suspect]
     Active Substance: UNSPECIFIED INGREDIENT
     Indication: NON-SMALL CELL LUNG CANCER
     Dosage: 27JUN-08AUG2013:260MG  2 COURSES.  19-19SEP13-226MG
     Route: 042
     Dates: start: 20130627, end: 20130919
  5. PLACEBO [Suspect]
     Active Substance: UNSPECIFIED INGREDIENT
     Indication: NON-SMALL CELL LUNG CANCER
     Dosage: 27JUN-08AUG2013:423MG  2 COURSES.  19-19SEP13-453MG
     Route: 042
     Dates: start: 20130627, end: 20130919
  6. BLINDED IPILIMUMAB [Suspect]
     Active Substance: IPILIMUMAB
     Indication: NON-SMALL CELL LUNG CANCER
     Dosage: 27JUN-08AUG2013:260MG  2 COURSES.  19-19SEP13-226MG
     Route: 042
     Dates: start: 20130627, end: 20130919
  7. METOCLOPRAMIDE. [Concomitant]
     Active Substance: METOCLOPRAMIDE
     Indication: PRODUCT USED FOR UNKNOWN INDICATION
     Dosage: 27-SEP-2013.
     Route: 065
     Dates: start: 20130812
  8. BISACODYL. [Concomitant]
     Active Substance: BISACODYL
     Indication: PRODUCT USED FOR UNKNOWN INDICATION
     Dosage: UNK
     Route: 065
     Dates: start: 20130923
  9. BLINDED IPILIMUMAB [Suspect]
     Active Substance: IPILIMUMAB
     Indication: NON-SMALL CELL LUNG CANCER
     Dosage: 27JUN-08AUG2013:423MG  2 COURSES.  19-19SEP13-453MG
     Route: 042
     Dates: start: 20130627, end: 20130919
  10. BLINDED PACLITAXEL [Suspect]
     Active Substance: PACLITAXEL
     Indication: NON-SMALL CELL LUNG CANCER
     Dosage: 27JUN-08AUG2013:260MG  2 COURSES.  19-19SEP13-226MG
     Route: 042
     Dates: start: 20130627, end: 20130919
  11. LANSOPRAZOLE. [Concomitant]
     Active Substance: LANSOPRAZOLE
     Indication: PRODUCT USED FOR UNKNOWN INDICATION
     Dosage: UNK
     Route: 065
     Dates: start: 1993
  12. AMBROXOL HCL [Concomitant]
     Indication: PRODUCT USED FOR UNKNOWN INDICATION
     Dosage: UNK
     Route: 065
     Dates: start: 20121112
  13. TIOTROPIUM BROMIDE [Concomitant]
     Active Substance: TIOTROPIUM BROMIDE
     Indication: PRODUCT USED FOR UNKNOWN INDICATION
     Dosage: UNK
     Route: 065
     Dates: start: 2007
  14. INSULIN LISPRO [Concomitant]
     Active Substance: INSULIN LISPRO
     Indication: PRODUCT USED FOR UNKNOWN INDICATION
     Dosage: UNK
     Route: 065
     Dates: start: 20130629
  15. BFLUID [Concomitant]
     Active Substance: AMINO ACIDS\DEXTROSE\ELECTROLYTES NOS\VITAMINS
     Indication: PRODUCT USED FOR UNKNOWN INDICATION
     Route: 065
  16. BLINDED IPILIMUMAB [Suspect]
     Active Substance: IPILIMUMAB
     Indication: NON-SMALL CELL LUNG CANCER
     Dosage: 90 ML, UNK
     Route: 042
     Dates: start: 20130919, end: 20130919
  17. BLINDED CARBOPLATIN [Suspect]
     Active Substance: CARBOPLATIN
     Indication: NON-SMALL CELL LUNG CANCER
     Dosage: 27JUN-08AUG2013:423MG  2 COURSES.  19-19SEP13-453MG
     Route: 042
     Dates: start: 20130627, end: 20130919
  18. REBAMIPIDE [Concomitant]
     Active Substance: REBAMIPIDE
     Indication: PRODUCT USED FOR UNKNOWN INDICATION
     Dosage: UNK
     Route: 065
     Dates: start: 20130430
  19. MAGNESIUMOXIDE [Concomitant]
     Active Substance: MAGNESIUM OXIDE
     Indication: PRODUCT USED FOR UNKNOWN INDICATION
     Dosage: UNK
     Route: 065
     Dates: start: 20130718
  20. MIYA-BM [Concomitant]
     Active Substance: CLOSTRIDIUM BUTYRICUM SPORES STRAIN M-55
     Dosage: UNK
     Dates: start: 20131025
  21. OXYCODONE [Concomitant]
     Active Substance: OXYCODONE
     Indication: PRODUCT USED FOR UNKNOWN INDICATION
     Route: 065
  22. PLACEBO [Suspect]
     Active Substance: UNSPECIFIED INGREDIENT
     Indication: NON-SMALL CELL LUNG CANCER
     Dosage: 90 ML, UNK
     Route: 042
     Dates: start: 20130919, end: 20130919
  23. SITAGLIPTIN PHOSPHATE [Concomitant]
     Active Substance: SITAGLIPTIN PHOSPHATE
     Indication: PRODUCT USED FOR UNKNOWN INDICATION
     Dosage: UNK
     Route: 065
     Dates: start: 20130710
  24. SENNOSIDE [Concomitant]
     Active Substance: SENNOSIDES
     Indication: PRODUCT USED FOR UNKNOWN INDICATION
     Dosage: UNK
     Route: 065
     Dates: start: 20131010
  25. NAFTOPIDIL [Concomitant]
     Active Substance: NAFTOPIDIL
     Indication: PRODUCT USED FOR UNKNOWN INDICATION
     Dosage: UNK
     Route: 065
     Dates: start: 20130523
  26. LACTATE [Concomitant]
     Indication: PRODUCT USED FOR UNKNOWN INDICATION
     Dosage: UNK
     Route: 065
     Dates: start: 20130812
  27. MAINTENANCE MEDIUM [Concomitant]
     Indication: PRODUCT USED FOR UNKNOWN INDICATION
     Dosage: UNK
     Route: 065
     Dates: start: 20130813

REACTIONS (4)
  - Malignant neoplasm progression [Fatal]
  - Febrile neutropenia [Recovered/Resolved]
  - Pneumonia aspiration [Recovered/Resolved]
  - Performance status decreased [Fatal]

NARRATIVE: CASE EVENT DATE: 20130813
